FAERS Safety Report 25805308 (Version 1)
Quarter: 2025Q3

REPORT INFORMATION
  Report Type: Spontaneous
  Country: JP (occurrence: JP)
  Receive Date: 20250916
  Receipt Date: 20250916
  Transmission Date: 20251021
  Serious: Yes (Other)
  Sender: PHARMOBEDIENT CONSULTING, LLC
  Company Number: JP-Pharmobedient-000195

PATIENT
  Age: 49 Year
  Sex: Female

DRUGS (2)
  1. GEMCITABINE [Suspect]
     Active Substance: GEMCITABINE
     Indication: Pancreatic carcinoma
  2. TS-1 [Suspect]
     Active Substance: GIMERACIL\OTERACIL POTASSIUM\TEGAFUR
     Indication: Pancreatic carcinoma

REACTIONS (3)
  - Neutropenia [Unknown]
  - Leukopenia [Unknown]
  - Therapy partial responder [Unknown]
